FAERS Safety Report 9617399 (Version 1)
Quarter: 2013Q4

REPORT INFORMATION
  Report Type: Spontaneous
  Country: JP (occurrence: JP)
  Receive Date: 20131011
  Receipt Date: 20131011
  Transmission Date: 20140711
  Serious: Yes (Death, Hospitalization)
  Sender: FDA-Public Use
  Company Number: JP-SA-2013SA099099

PATIENT
  Age: 25 Year
  Sex: Male

DRUGS (4)
  1. FLUDARABINE PHOSPHATE [Suspect]
     Indication: IMMUNOSUPPRESSION
     Route: 065
  2. ANTI-THYMOCYTE GLOBULIN (RABBIT) [Suspect]
     Indication: IMMUNOSUPPRESSION
     Route: 065
  3. L-PAM [Suspect]
     Indication: IMMUNOSUPPRESSION
     Route: 065
  4. METHYLPREDNISOLONE [Concomitant]
     Indication: PROPHYLAXIS AGAINST GRAFT VERSUS HOST DISEASE

REACTIONS (10)
  - Thrombotic microangiopathy [Fatal]
  - Platelet count decreased [Fatal]
  - Blood lactate dehydrogenase increased [Fatal]
  - Pyrexia [Fatal]
  - Haemolytic anaemia [Fatal]
  - Renal failure [Fatal]
  - Coma [Fatal]
  - Multi-organ failure [Fatal]
  - Ataxia [Unknown]
  - Tremor [Unknown]
